FAERS Safety Report 19815977 (Version 1)
Quarter: 2021Q3

REPORT INFORMATION
  Report Type: Spontaneous
  Country: US (occurrence: US)
  Receive Date: 20210909
  Receipt Date: 20210909
  Transmission Date: 20211014
  Serious: No
  Sender: FDA-Public Use
  Company Number: US-NKFPHARMA-2021MPSPO00029

PATIENT
  Age: 1 Year
  Sex: Male

DRUGS (2)
  1. ENOXAPARIN SODIUM INJECTION, USP 40MG/0.4ML (100MG PER ML) [Suspect]
     Active Substance: ENOXAPARIN SODIUM
  2. ENOXAPARIN SODIUM INJECTION, USP 40MG/0.4ML (100MG PER ML) [Suspect]
     Active Substance: ENOXAPARIN SODIUM
     Indication: ACCIDENTAL EXPOSURE TO PRODUCT BY CHILD

REACTIONS (1)
  - Skin laceration [Recovered/Resolved]

NARRATIVE: CASE EVENT DATE: 20210721
